FAERS Safety Report 25844108 (Version 1)
Quarter: 2025Q3

REPORT INFORMATION
  Report Type: Report from Study
  Country: US (occurrence: US)
  Receive Date: 20250925
  Receipt Date: 20250925
  Transmission Date: 20251021
  Serious: Yes (Other)
  Sender: TAKEDA
  Company Number: US-TAKEDA-US202031580

PATIENT
  Age: 60 Year
  Sex: Female

DRUGS (2)
  1. HUMAN IMMUNOGLOBULIN G [Suspect]
     Active Substance: HUMAN IMMUNOGLOBULIN G
     Indication: Primary immunodeficiency syndrome
     Dosage: 35 GRAM, Q4WEEKS
  2. HUMAN IMMUNOGLOBULIN G [Suspect]
     Active Substance: HUMAN IMMUNOGLOBULIN G
     Indication: Immunodeficiency common variable

REACTIONS (31)
  - Muscle haemorrhage [Unknown]
  - Fall [Unknown]
  - Perfume sensitivity [Unknown]
  - Lymphoedema [Unknown]
  - Sinus disorder [Unknown]
  - Coccydynia [Unknown]
  - Respiratory fume inhalation disorder [Unknown]
  - Malaise [Unknown]
  - Pain [Unknown]
  - Asthma [Unknown]
  - Lymphadenopathy [Unknown]
  - Headache [Unknown]
  - Hot flush [Unknown]
  - Swelling [Unknown]
  - Ear pain [Unknown]
  - Rash macular [Unknown]
  - Epistaxis [Unknown]
  - Infusion site haemorrhage [Unknown]
  - Infusion site extravasation [Unknown]
  - Infusion site pain [Unknown]
  - Fatigue [Unknown]
  - Dyskinesia [Unknown]
  - Blood immunoglobulin G decreased [Unknown]
  - Illness [Unknown]
  - Muscle rigidity [Unknown]
  - Wrong product administered [Unknown]
  - Inappropriate schedule of product administration [Unknown]
  - Poor venous access [Unknown]
  - Asthenia [Unknown]
  - Pyrexia [Unknown]
  - Migraine [Unknown]

NARRATIVE: CASE EVENT DATE: 20230619
